FAERS Safety Report 6538718-7 (Version None)
Quarter: 2010Q1

REPORT INFORMATION
  Report Type: 
  Country: None (occurrence: None)
  Receive Date: 20100113
  Receipt Date: 20100113
  Transmission Date: 20100710
  Serious: Yes (Hospitalization)
  Sender: FDA-Public Use
  Company Number: None

PATIENT
  Age: 78 Year
  Sex: Male
  Weight: 76.4 kg

DRUGS (3)
  1. BEVACIZUMAB 7.5 MG/KG, ACTUAL DOSE GIVEN WAS 564.7 MG [Suspect]
     Indication: COLORECTAL CANCER METASTATIC
     Dosage: 564.7MG DAY 1+22 OF 6WK CYC IV
     Route: 042
     Dates: start: 20080710
  2. IMODIUM [Concomitant]
  3. COUMADIN [Concomitant]

REACTIONS (3)
  - BACK PAIN [None]
  - DYSSTASIA [None]
  - SPINAL CORD COMPRESSION [None]
